FAERS Safety Report 17348439 (Version 1)
Quarter: 2020Q1

REPORT INFORMATION
  Report Type: Spontaneous
  Country: US (occurrence: US)
  Receive Date: 20200115
  Receipt Date: 20200115
  Transmission Date: 20200409
  Serious: No
  Sender: FDA-Public Use
  Company Number: None

PATIENT
  Sex: Female

DRUGS (1)
  1. MYCOPHENOLATE [Suspect]
     Active Substance: MYCOPHENOLIC ACID
     Indication: LUNG DISORDER
     Route: 048
     Dates: start: 20190430

REACTIONS (6)
  - Urticaria [None]
  - Dyspepsia [None]
  - Chills [None]
  - Infection [None]
  - Pruritus [None]
  - Nausea [None]
